FAERS Safety Report 7396236-0 (Version None)
Quarter: 2011Q2

REPORT INFORMATION
  Report Type: 
  Country: None (occurrence: None)
  Receive Date: 20110406
  Receipt Date: 20110324
  Transmission Date: 20111010
  Serious: Yes (Death, Life-Threatening, Other)
  Sender: FDA-Public Use
  Company Number: FR-CELGENEUS-056-50794-10062588

PATIENT
  Sex: Female
  Weight: 52 kg

DRUGS (9)
  1. RED BLOOD CELLS [Concomitant]
     Indication: ANAEMIA
     Route: 051
     Dates: start: 20100617, end: 20100617
  2. KARDEGIC [Concomitant]
     Route: 048
     Dates: start: 20100301
  3. REVLIMID [Suspect]
     Dosage: 5 MILLIGRAM
     Route: 048
     Dates: start: 20100607, end: 20100617
  4. VIDAZA [Suspect]
     Dosage: 115 MILLIGRAM
     Route: 058
     Dates: start: 20100607, end: 20100611
  5. TEGRETOL [Concomitant]
     Indication: EPILEPSY
     Route: 048
     Dates: start: 19950101, end: 20100621
  6. KARDEGIC [Concomitant]
     Dosage: 75 MILLIGRAM
     Route: 065
  7. PIASCLEDINE [Concomitant]
     Route: 048
     Dates: start: 20100301, end: 20100621
  8. OROCAL [Concomitant]
     Route: 048
     Dates: start: 20100301, end: 20100621
  9. PIASCLEDINE [Concomitant]
     Route: 048

REACTIONS (5)
  - SEPSIS [None]
  - ACUTE MYELOID LEUKAEMIA [None]
  - MYELODYSPLASTIC SYNDROME TRANSFORMATION [None]
  - PNEUMONIA [None]
  - MULTI-ORGAN FAILURE [None]
